FAERS Safety Report 17411900 (Version 1)
Quarter: 2020Q1

REPORT INFORMATION
  Report Type: Spontaneous
  Country: US (occurrence: US)
  Receive Date: 20200129
  Receipt Date: 20200129
  Transmission Date: 20200409
  Serious: Yes (Hospitalization)
  Sender: FDA-Public Use
  Company Number: None

PATIENT
  Sex: Female

DRUGS (3)
  1. CYCLOPHOSPHAMIDE 50MG [Suspect]
     Active Substance: CYCLOPHOSPHAMIDE
     Indication: BREAST CANCER
     Dosage: ?          OTHER DOSE:2 CAPS;?
     Route: 048
     Dates: start: 20181217
  2. DRONABINOL. [Concomitant]
     Active Substance: DRONABINOL
  3. BENZONATATE. [Concomitant]
     Active Substance: BENZONATATE

REACTIONS (1)
  - Hospitalisation [None]
